FAERS Safety Report 22146997 (Version 1)
Quarter: 2023Q1

REPORT INFORMATION
  Report Type: Spontaneous
  Country: US (occurrence: US)
  Receive Date: 20230328
  Receipt Date: 20230328
  Transmission Date: 20230417
  Serious: No
  Sender: FDA-Public Use
  Company Number: US-Nobelpharma America, LLC-NPA-2023-00500

PATIENT
  Age: 16 Year
  Sex: Male

DRUGS (1)
  1. HYFTOR [Suspect]
     Active Substance: SIROLIMUS
     Indication: Tuberous sclerosis complex
     Dosage: APPLY THINLY TO AFFECTED AREA OF THE FACE TWICE DAILY
     Route: 061
     Dates: start: 20230222

REACTIONS (3)
  - Application site pain [None]
  - Application site pain [None]
  - Sensitive skin [None]
